FAERS Safety Report 16104214 (Version 6)
Quarter: 2019Q4

REPORT INFORMATION
  Report Type: Spontaneous
  Country: US (occurrence: US)
  Receive Date: 20190322
  Receipt Date: 20191009
  Transmission Date: 20200122
  Serious: Yes (Hospitalization, Other)
  Sender: FDA-Public Use
  Company Number: US-BIOGEN-2019BI00712094

PATIENT
  Age: 3 Year
  Sex: Male
  Weight: 10 kg

DRUGS (5)
  1. SPINRAZA [Suspect]
     Active Substance: NUSINERSEN
     Dosage: MAINTENANCE PHASE
     Route: 037
     Dates: start: 20170207
  2. SPINRAZA [Suspect]
     Active Substance: NUSINERSEN
     Indication: SPINAL MUSCULAR ATROPHY
     Dosage: LOADING PHASE
     Route: 037
     Dates: start: 20161207, end: 20170104
  3. MELATONIN [Concomitant]
     Active Substance: MELATONIN
     Indication: PRODUCT USED FOR UNKNOWN INDICATION
     Route: 065
  4. SIMETHICONE (DIMETHICONE) [Concomitant]
     Active Substance: DIMETHICONE
     Indication: PRODUCT USED FOR UNKNOWN INDICATION
     Dosage: 40MG/0.6ML
     Route: 065
  5. MIRALAX [Concomitant]
     Active Substance: POLYETHYLENE GLYCOL 3350
     Indication: PRODUCT USED FOR UNKNOWN INDICATION

REACTIONS (43)
  - Meningitis pneumococcal [Recovered/Resolved]
  - Stenotrophomonas infection [Unknown]
  - Status epilepticus [Unknown]
  - Adenovirus infection [Recovered/Resolved]
  - Metabolic disorder [Unknown]
  - Thyroid function test abnormal [Unknown]
  - Anaemia [Unknown]
  - Medical device site haemorrhage [Recovered/Resolved]
  - Streptococcal bacteraemia [Unknown]
  - Respiratory syncytial virus bronchiolitis [Recovered/Resolved]
  - Catheter site thrombosis [Unknown]
  - Thyroid disorder [Unknown]
  - Thrombocytosis [Unknown]
  - Cerebral ventricle dilatation [Unknown]
  - Pneumonia escherichia [Recovered/Resolved]
  - Sepsis [Unknown]
  - Vomiting [Recovered/Resolved]
  - Otitis media acute [Recovered/Resolved]
  - Fatigue [Unknown]
  - Bacteraemia [Unknown]
  - Device malfunction [Recovered/Resolved]
  - Scoliosis [Unknown]
  - Rhinovirus infection [Recovered/Resolved]
  - Weight decreased [Unknown]
  - Endotracheal intubation complication [Unknown]
  - Refeeding syndrome [Unknown]
  - Hydrocephalus [Unknown]
  - Pyrexia [Recovered/Resolved]
  - Joint dislocation [Unknown]
  - Corneal abrasion [Unknown]
  - Acute respiratory failure [Recovered/Resolved]
  - Vertebral artery stenosis [Unknown]
  - Serratia infection [Unknown]
  - Myocarditis septic [Unknown]
  - Bradycardia [Recovered/Resolved]
  - Inappropriate antidiuretic hormone secretion [Recovered/Resolved]
  - Enterovirus infection [Recovered/Resolved]
  - Urine output decreased [Unknown]
  - Infective thrombosis [Unknown]
  - Hyperlactacidaemia [Unknown]
  - Vasculitis [Unknown]
  - Paroxysmal sympathetic hyperactivity [Recovered/Resolved]
  - Irritability [Unknown]

NARRATIVE: CASE EVENT DATE: 2017
